FAERS Safety Report 7764538-1 (Version None)
Quarter: 2011Q3

REPORT INFORMATION
  Report Type: 
  Country: None (occurrence: None)
  Receive Date: 20110921
  Receipt Date: 20110916
  Transmission Date: 20111222
  Serious: Yes (Death)
  Sender: FDA-Public Use
  Company Number: JP-PFIZER INC-2011167283

PATIENT
  Age: 70 Year
  Sex: Male

DRUGS (1)
  1. ZOSYN [Suspect]
     Route: 041

REACTIONS (1)
  - RENAL FAILURE CHRONIC [None]
